FAERS Safety Report 4572250-5 (Version None)
Quarter: 2005Q1

REPORT INFORMATION
  Report Type: 
  Country: None (occurrence: None)
  Receive Date: 20050203
  Receipt Date: 20050121
  Transmission Date: 20050727
  Serious: Yes (Life-Threatening, Hospitalization, Other)
  Sender: FDA-Public Use
  Company Number: HQWYE174423DEC04

PATIENT
  Age: 68 Year
  Sex: Female

DRUGS (10)
  1. CORDARONE [Suspect]
     Indication: ATRIAL TACHYCARDIA
     Dosage: 450 MG 1X PER 1 DAY INTRAVENOUS
     Route: 042
     Dates: start: 20041203, end: 20041204
  2. CORDARONE [Suspect]
     Indication: ATRIAL TACHYCARDIA
     Dosage: 200 MG 1X PER 1 DAY ORAL
     Route: 048
     Dates: start: 20051205, end: 20041215
  3. HEPARIN [Concomitant]
  4. MIDAZOLAM HCL [Concomitant]
  5. OMEPRAZOLE [Concomitant]
  6. LASILIX (FUROSEMIDE) [Concomitant]
  7. DOBUTAMINE (DOBUTAMINE) [Concomitant]
  8. DOPAMINE (DOPAMINE) [Concomitant]
  9. EPINEPHRINE [Concomitant]
  10. SUFENA (SUFENTANIL CITRATE) [Concomitant]

REACTIONS (1)
  - PNEUMONITIS [None]
